FAERS Safety Report 13115680 (Version 21)
Quarter: 2019Q4

REPORT INFORMATION
  Report Type: Report from Study
  Country: None (occurrence: NL)
  Receive Date: 20170114
  Receipt Date: 20191224
  Transmission Date: 20200122
  Serious: Yes (Hospitalization)
  Sender: FDA-Public Use
  Company Number: NL-ABBVIE-17P-114-1840811-00

PATIENT
  Age: 79 Year
  Sex: Female
  Weight: 58 kg

DRUGS (15)
  1. DUODOPA [Suspect]
     Active Substance: CARBIDOPA\LEVODOPA
     Dosage: MD 10, CD 6.5, ED 4.1
     Route: 050
  2. SINEMET CR [Concomitant]
     Active Substance: CARBIDOPA\LEVODOPA
     Indication: PRODUCT USED FOR UNKNOWN INDICATION
     Dosage: AROUND 10 PM
  3. DUODOPA [Suspect]
     Active Substance: CARBIDOPA\LEVODOPA
     Dosage: CONTINUOUS DOSE INCREASED TO 5.3ML. EXTRA DOSE IS INCREASED TO 4ML
     Route: 050
  4. DUODOPA [Suspect]
     Active Substance: CARBIDOPA\LEVODOPA
     Dosage: MD: 10.0, CD: 6.7, ED: 4.0
     Route: 050
  5. DUODOPA [Suspect]
     Active Substance: CARBIDOPA\LEVODOPA
     Dosage: MD: 10, CD: 4.1, ED: 4.1, 16 HOUR ADMINISTRATION
     Route: 050
     Dates: start: 20161222
  6. DUODOPA [Suspect]
     Active Substance: CARBIDOPA\LEVODOPA
     Dosage: MD 10.0, CD 7.9, ED 4.3; 16 HOUR ADMINISTRATION
     Route: 050
  7. LEVODOPA [Concomitant]
     Active Substance: LEVODOPA
     Indication: PRODUCT USED FOR UNKNOWN INDICATION
  8. SUDOCREM [Concomitant]
     Active Substance: LANOLIN\ZINC OXIDE
     Indication: PRODUCT USED FOR UNKNOWN INDICATION
  9. DUODOPA [Suspect]
     Active Substance: CARBIDOPA\LEVODOPA
     Dosage: MD 10.0?CD 7.5?ED 4.3
     Route: 050
  10. DUODOPA [Suspect]
     Active Substance: CARBIDOPA\LEVODOPA
     Indication: PARKINSON^S DISEASE
     Dosage: MD: 18, CD: 4.8, ED: 3
     Route: 050
     Dates: start: 20161219
  11. DUODOPA [Suspect]
     Active Substance: CARBIDOPA\LEVODOPA
     Dosage: MORNING DOSE 10.0 ML CONTINUOUS DOSE 6.9 ML/HR EXTRA DOSE 4.1 ML
     Route: 050
     Dates: start: 201609, end: 2016
  12. DUODOPA [Suspect]
     Active Substance: CARBIDOPA\LEVODOPA
     Dosage: MD: 10.0, CD: 7.3, ED: 4.3 16 HOUR ADMINISTRATION
     Route: 050
  13. DUODOPA [Suspect]
     Active Substance: CARBIDOPA\LEVODOPA
     Dosage: MD: 19 ML, CD: 5.0, ED: 3
     Route: 050
  14. DUODOPA [Suspect]
     Active Substance: CARBIDOPA\LEVODOPA
     Dosage: MORNING DOSE IS REDUCED WITH 40% TO 9.4ML
     Route: 050
     Dates: start: 20170216
  15. DUODOPA [Suspect]
     Active Substance: CARBIDOPA\LEVODOPA
     Dosage: MD 10,0 CD 7,7 ED 4.3
     Route: 050

REACTIONS (48)
  - Bronchitis [Recovered/Resolved]
  - Respiratory tract infection [Recovered/Resolved]
  - Muscle rigidity [Recovered/Resolved]
  - Device effect variable [Unknown]
  - Osteoarthritis [Not Recovered/Not Resolved]
  - Fibroma [Recovered/Resolved]
  - Freezing phenomenon [Recovered/Resolved]
  - Stoma site discharge [Recovered/Resolved]
  - Product dose omission [Unknown]
  - Muscle rigidity [Unknown]
  - Stoma site discomfort [Not Recovered/Not Resolved]
  - On and off phenomenon [Recovered/Resolved]
  - Somnolence [Not Recovered/Not Resolved]
  - Abnormal faeces [Not Recovered/Not Resolved]
  - Mental impairment [Recovered/Resolved]
  - Weight increased [Not Recovered/Not Resolved]
  - Drug ineffective [Recovered/Resolved]
  - Cognitive disorder [Not Recovered/Not Resolved]
  - Fibroma [Not Recovered/Not Resolved]
  - Mental impairment [Not Recovered/Not Resolved]
  - Drug ineffective [Not Recovered/Not Resolved]
  - Stoma site inflammation [Recovered/Resolved]
  - On and off phenomenon [Not Recovered/Not Resolved]
  - Musculoskeletal stiffness [Not Recovered/Not Resolved]
  - Social avoidant behaviour [Not Recovered/Not Resolved]
  - Malaise [Not Recovered/Not Resolved]
  - Parkinson^s disease [Recovered/Resolved]
  - Sluggishness [Not Recovered/Not Resolved]
  - Muscle rigidity [Not Recovered/Not Resolved]
  - Weight decreased [Recovered/Resolved]
  - Somnolence [Recovered/Resolved]
  - Stoma site reaction [Unknown]
  - Movement disorder [Recovered/Resolved]
  - Speech disorder [Not Recovered/Not Resolved]
  - Apathy [Not Recovered/Not Resolved]
  - Fatigue [Not Recovered/Not Resolved]
  - Dystonia [Not Recovered/Not Resolved]
  - Bradykinesia [Recovered/Resolved]
  - Pneumonia [Recovered/Resolved]
  - Extra dose administered [Recovered/Resolved]
  - Mobility decreased [Not Recovered/Not Resolved]
  - Intertrigo [Unknown]
  - Memory impairment [Unknown]
  - Nutritional condition abnormal [Recovered/Resolved with Sequelae]
  - Loss of personal independence in daily activities [Not Recovered/Not Resolved]
  - Dysphonia [Recovered/Resolved]
  - Therapeutic product effect variable [Recovered/Resolved]
  - Stoma site erythema [Recovered/Resolved]

NARRATIVE: CASE EVENT DATE: 201701
